FAERS Safety Report 5431227-8 (Version None)
Quarter: 2007Q3

REPORT INFORMATION
  Report Type: 
  Country: None (occurrence: None)
  Receive Date: 20070830
  Receipt Date: 20070823
  Transmission Date: 20080115
  Serious: Yes (Hospitalization)
  Sender: FDA-Public Use
  Company Number: JP-ELI_LILLY_AND_COMPANY-JP200708005213

PATIENT
  Age: 75 Year
  Sex: Female
  Weight: 39.4 kg

DRUGS (6)
  1. RALOXIFENE HYDROCHLORIDE [Suspect]
     Indication: OSTEOPOROSIS POSTMENOPAUSAL
     Dosage: 60 MG, DAILY (1/D)
     Route: 048
     Dates: start: 20050328
  2. MIYA-BM [Concomitant]
     Indication: GASTROINTESTINAL DISORDER
     Dosage: 3 G, DAILY (1/D)
     Route: 048
     Dates: start: 20020920
  3. GASCON [Concomitant]
     Indication: GASTROINTESTINAL DISORDER
     Dosage: 120 MG, DAILY (1/D)
     Route: 048
     Dates: start: 20020920
  4. MAGNESIUM OXIDE [Concomitant]
     Indication: GASTROINTESTINAL DISORDER
     Dosage: 2 G, DAILY (1/D)
     Route: 048
     Dates: start: 20020920
  5. FAMOTIDINE [Concomitant]
     Indication: GASTROINTESTINAL DISORDER
     Dosage: 20 MG, DAILY (1/D)
     Route: 048
  6. ASPIRIN [Concomitant]
     Indication: CEREBRAL INFARCTION
     Dosage: 100 MG, DAILY (1/D)
     Route: 048

REACTIONS (1)
  - FEMORAL NECK FRACTURE [None]
